FAERS Safety Report 10170963 (Version 1)
Quarter: 2014Q2

REPORT INFORMATION
  Report Type: Spontaneous
  Country: US (occurrence: None)
  Receive Date: 20140512
  Receipt Date: 20140512
  Transmission Date: 20141212
  Serious: Yes (Hospitalization)
  Sender: FDA-Public Use
  Company Number: NSR_01547_2014

PATIENT
  Age: 32 Year
  Sex: Male

DRUGS (9)
  1. HYDROXYZINE [Suspect]
     Indication: ANXIETY
  2. DIVALPROEX [Suspect]
     Indication: PRODUCT USED FOR UNKNOWN INDICATION
  3. CHLORPROMAZINE [Suspect]
     Indication: PRODUCT USED FOR UNKNOWN INDICATION
  4. HALOPERIDOL [Suspect]
     Indication: PRODUCT USED FOR UNKNOWN INDICATION
     Dosage: 2 MG DAILY (MORNINGS) AND 5 MG AT BEDTIME
  5. BENZTROPINE [Suspect]
     Indication: PRODUCT USED FOR UNKNOWN INDICATION
  6. CITALOPRAM [Suspect]
     Indication: PRODUCT USED FOR UNKNOWN INDICATION
  7. ACETAMINOPHEN [Concomitant]
  8. LEVOTHYROXINE [Concomitant]
  9. PSYLLIUM [Concomitant]

REACTIONS (6)
  - Loss of consciousness [None]
  - Meningitis bacterial [None]
  - Neuroleptic malignant syndrome [None]
  - Coma [None]
  - Hypotension [None]
  - Blood glucose increased [None]
